FAERS Safety Report 11681200 (Version 2)
Quarter: 2015Q4

REPORT INFORMATION
  Report Type: Spontaneous
  Country: US (occurrence: US)
  Receive Date: 20151027
  Receipt Date: 20151104
  Transmission Date: 20160304
  Serious: No
  Sender: FDA-Public Use
  Company Number: US-ELI_LILLY_AND_COMPANY-US201007006682

PATIENT
  Sex: Female

DRUGS (1)
  1. FORTEO [Suspect]
     Active Substance: TERIPARATIDE
     Indication: BONE LOSS
     Dosage: 20 UG, DAILY (1/D)
     Route: 058
     Dates: start: 20100705, end: 20110420

REACTIONS (5)
  - Off label use [Unknown]
  - Nervousness [Unknown]
  - Anxiety [Unknown]
  - Fall [Not Recovered/Not Resolved]
  - Contusion [Unknown]
